FAERS Safety Report 7651628-7 (Version None)
Quarter: 2011Q3

REPORT INFORMATION
  Report Type: 
  Country: None (occurrence: None)
  Receive Date: 20110802
  Receipt Date: 20110801
  Transmission Date: 20111222
  Serious: Yes (Life-Threatening, Hospitalization)
  Sender: FDA-Public Use
  Company Number: FR-GILEAD-2011-0039589

PATIENT
  Sex: Female

DRUGS (12)
  1. PREZISTA [Suspect]
     Indication: HIV INFECTION
     Route: 048
     Dates: end: 20110407
  2. ACETAMINOPHEN [Concomitant]
     Route: 048
     Dates: start: 20110317, end: 20110405
  3. EMEND [Concomitant]
     Indication: CHEMOTHERAPY
     Route: 048
     Dates: start: 20110318, end: 20110319
  4. NEXIUM [Concomitant]
     Route: 048
     Dates: start: 20110317
  5. ONDANSETRON [Concomitant]
     Indication: HIV INFECTION
     Route: 042
     Dates: start: 20110318, end: 20110319
  6. TRABECTEDIN [Suspect]
     Indication: SARCOMA UTERUS
     Route: 042
     Dates: start: 20110318, end: 20110318
  7. DEXAMETHASONE [Concomitant]
     Indication: HIV INFECTION
     Route: 042
     Dates: start: 20110318, end: 20110319
  8. OESTRODOSE [Concomitant]
     Route: 003
  9. TRUVADA [Suspect]
     Indication: HIV INFECTION
     Route: 048
     Dates: end: 20110405
  10. NORVIR [Suspect]
     Indication: HIV INFECTION
     Route: 048
     Dates: end: 20110407
  11. BACTRIM [Suspect]
     Route: 048
     Dates: start: 20110317
  12. VOGALENE [Concomitant]
     Indication: CHEMOTHERAPY
     Dates: start: 20110317

REACTIONS (4)
  - HEPATIC ENZYME INCREASED [None]
  - RENAL FAILURE ACUTE [None]
  - RHABDOMYOLYSIS [None]
  - ANURIA [None]
